FAERS Safety Report 9303021 (Version 1)
Quarter: 2013Q2

REPORT INFORMATION
  Report Type: Spontaneous
  Country: BR (occurrence: BR)
  Receive Date: 20130522
  Receipt Date: 20130522
  Transmission Date: 20140414
  Serious: Yes (Disabling)
  Sender: FDA-Public Use
  Company Number: BR-B.I. PHARMACEUTICALS,INC./RIDGEFIELD-2013-BR-00471BR

PATIENT
  Age: 69 Year
  Sex: Male

DRUGS (5)
  1. SECOTEX ADV [Suspect]
     Indication: PROSTATITIS
     Dosage: 0.4 MG
     Route: 048
     Dates: start: 20130412, end: 20130412
  2. ANLODIPINE [Concomitant]
     Indication: HYPERTENSION
  3. SELOZOK [Concomitant]
     Indication: HYPERTENSION
  4. NATRILIX [Concomitant]
     Indication: HYPERTENSION
  5. ARADOIS [Concomitant]
     Indication: HYPERTENSION

REACTIONS (5)
  - Cervical vertebral fracture [Not Recovered/Not Resolved]
  - Dizziness [Recovered/Resolved]
  - Syncope [Recovered/Resolved]
  - Fall [Recovered/Resolved]
  - Back pain [Not Recovered/Not Resolved]
